FAERS Safety Report 7176784-9 (Version None)
Quarter: 2010Q4

REPORT INFORMATION
  Report Type: 
  Country: None (occurrence: None)
  Receive Date: 20101215
  Receipt Date: 20101215
  Transmission Date: 20110411
  Serious: Yes (Hospitalization)
  Sender: FDA-Public Use
  Company Number: None

PATIENT
  Sex: Female
  Weight: 54.1 kg

DRUGS (18)
  1. ERLOTINIB [Suspect]
     Indication: PANCREATIC CARCINOMA
     Dosage: 150MG PO INTERMITTENT
     Route: 048
     Dates: start: 20101008, end: 20101130
  2. GEMCITABINE [Suspect]
     Indication: PANCREATIC CARCINOMA
     Dosage: 500MG/M2 WEEKLY IV
     Route: 042
     Dates: start: 20101007, end: 20101110
  3. MERUONTIN [Concomitant]
  4. DECADRON [Concomitant]
  5. BUPROPION [Concomitant]
  6. FRAGMIN [Concomitant]
  7. COLACE [Concomitant]
  8. DURAGESIC-50 [Concomitant]
  9. KETAMINE [Concomitant]
  10. LEVOTHYROXINE [Concomitant]
  11. CLARITIN [Concomitant]
  12. ATIVAN [Concomitant]
  13. METHADONE [Concomitant]
  14. SINGULARI [Concomitant]
  15. AMBIEN [Concomitant]
  16. ZOFRAN [Concomitant]
  17. NICODERM [Concomitant]
  18. COMPAZINE [Concomitant]

REACTIONS (3)
  - ACUTE MYOCARDIAL INFARCTION [None]
  - METABOLIC ENCEPHALOPATHY [None]
  - TOXIC ENCEPHALOPATHY [None]
